FAERS Safety Report 20697547 (Version 2)
Quarter: 2022Q4

REPORT INFORMATION
  Report Type: Spontaneous
  Country: JP (occurrence: JP)
  Receive Date: 20220411
  Receipt Date: 20221214
  Transmission Date: 20230113
  Serious: Yes (Hospitalization, Other)
  Sender: FDA-Public Use
  Company Number: JP-DSJP-DSJ-2022-112050

PATIENT
  Age: 83 Year
  Sex: Male
  Weight: 44 kg

DRUGS (1)
  1. EDOXABAN TOSYLATE [Suspect]
     Active Substance: EDOXABAN TOSYLATE
     Indication: Atrial fibrillation
     Dosage: 30 MG, QD
     Route: 048

REACTIONS (3)
  - Arterial injury [Recovered/Resolved with Sequelae]
  - Shock haemorrhagic [Recovering/Resolving]
  - Acute coronary syndrome [Unknown]

NARRATIVE: CASE EVENT DATE: 20210715
